FAERS Safety Report 5515218-4 (Version None)
Quarter: 2007Q4

REPORT INFORMATION
  Report Type: 
  Country: None (occurrence: None)
  Receive Date: 20071109
  Receipt Date: 20071102
  Transmission Date: 20080405
  Serious: Yes (Other)
  Sender: FDA-Public Use
  Company Number: CHPA2007US11736

PATIENT
  Sex: Male

DRUGS (1)
  1. NICOTINE [Suspect]
     Indication: SMOKING CESSATION THERAPY
     Dosage: 21 MG, QD, TRANSDERMAL
     Route: 062
     Dates: start: 20070930, end: 20071023

REACTIONS (5)
  - APPLICATION SITE BURN [None]
  - APPLICATION SITE SCAR [None]
  - BLOOD PRESSURE INCREASED [None]
  - HEADACHE [None]
  - INSOMNIA [None]
